FAERS Safety Report 4909949-4 (Version None)
Quarter: 2006Q1

REPORT INFORMATION
  Report Type: 
  Country: None (occurrence: None)
  Receive Date: 20060208
  Receipt Date: 20060129
  Transmission Date: 20060701
  Serious: Yes (Death, Hospitalization, Other)
  Sender: FDA-Public Use
  Company Number: 2006013976

PATIENT
  Age: 69 Year
  Sex: Female

DRUGS (3)
  1. CELECOXIB                   (CELECOXIB) [Suspect]
     Indication: PAIN IN EXTREMITY
     Dosage: 200 MG (200 MG, 1 IN 1 D), ORAL
     Route: 048
     Dates: start: 20060121, end: 20060128
  2. PIROXICAM [Suspect]
     Indication: PAIN IN EXTREMITY
     Dosage: 20 MG (20 MG, 1 IN 1 D),
     Dates: start: 20060121, end: 20060128
  3. ALL OTHER THERAPEUTIC PRODUCTS [Concomitant]

REACTIONS (3)
  - ABDOMINAL PAIN UPPER [None]
  - CHEST PAIN [None]
  - MYOCARDIAL INFARCTION [None]
